FAERS Safety Report 17027693 (Version 1)
Quarter: 2019Q4

REPORT INFORMATION
  Report Type: Spontaneous
  Country: US (occurrence: US)
  Receive Date: 20191113
  Receipt Date: 20191113
  Transmission Date: 20200122
  Serious: No
  Sender: FDA-Public Use
  Company Number: US-ELI_LILLY_AND_COMPANY-US201911003014

PATIENT
  Age: 49 Year

DRUGS (1)
  1. EMGALITY [Suspect]
     Active Substance: GALCANEZUMAB-GNLM
     Indication: PRODUCT USED FOR UNKNOWN INDICATION
     Dosage: 1 DOSAGE FORM, UNKNOWN
     Route: 065
     Dates: start: 201908

REACTIONS (5)
  - Abdominal pain upper [Unknown]
  - Back pain [Recovered/Resolved]
  - Back pain [Recovering/Resolving]
  - Movement disorder [Recovering/Resolving]
  - Gait inability [Recovering/Resolving]
